FAERS Safety Report 8926559 (Version 1)
Quarter: 2012Q4

REPORT INFORMATION
  Report Type: 
  Country: FR (occurrence: FR)
  Receive Date: 20121127
  Receipt Date: 20121127
  Transmission Date: 20130627
  Serious: Yes (Life-Threatening, Hospitalization)
  Sender: FDA-Public Use
  Company Number: FR-ASTRAZENECA-2012SE89217

PATIENT
  Age: 23777 Day
  Sex: Male

DRUGS (17)
  1. INEXIUM [Suspect]
     Route: 048
     Dates: start: 20120911
  2. INEXIUM [Suspect]
     Route: 048
     Dates: start: 20120927, end: 20121021
  3. RIFADINE [Suspect]
     Route: 048
     Dates: start: 20120927, end: 20121021
  4. ROCEPHINE [Suspect]
     Route: 042
     Dates: start: 20120917, end: 20121021
  5. OFLOCET [Suspect]
     Route: 048
     Dates: start: 20120917, end: 20121021
  6. GENTAMICINE [Concomitant]
     Dates: start: 20120917
  7. XARELTO [Concomitant]
  8. PERFALGAN [Concomitant]
  9. ACUPAN [Concomitant]
  10. ACTISKENAN [Concomitant]
  11. LASILIX [Concomitant]
  12. PROCORALAN [Concomitant]
  13. HEXAQUINE [Concomitant]
  14. CORDARONE [Concomitant]
  15. TARGOCID [Concomitant]
  16. CLAFORAN [Concomitant]
  17. HEPARINE [Concomitant]

REACTIONS (2)
  - Cardio-respiratory arrest [Unknown]
  - Stevens-Johnson syndrome [Recovered/Resolved]
